FAERS Safety Report 18664111 (Version 1)
Quarter: 2020Q4

REPORT INFORMATION
  Report Type: Spontaneous
  Country: US (occurrence: US)
  Receive Date: 20201225
  Receipt Date: 20201225
  Transmission Date: 20210114
  Serious: No
  Sender: FDA-Public Use
  Company Number: US-ACCORD-169831

PATIENT
  Age: 56 Year
  Sex: Male
  Weight: 68.04 kg

DRUGS (1)
  1. ROSUVASTATIN ACCORD [Suspect]
     Active Substance: ROSUVASTATIN
     Indication: HYPERCHOLESTEROLAEMIA

REACTIONS (2)
  - Product substitution issue [Unknown]
  - Drug ineffective [Unknown]
